FAERS Safety Report 4802977-9 (Version None)
Quarter: 2005Q4

REPORT INFORMATION
  Report Type: 
  Country: None (occurrence: None)
  Receive Date: 20051019
  Receipt Date: 20051010
  Transmission Date: 20060501
  Serious: Yes (Hospitalization)
  Sender: FDA-Public Use
  Company Number: PHRM2005FR02671

PATIENT
  Age: 52 Year
  Sex: Male

DRUGS (2)
  1. COTAREG [Suspect]
     Route: 048
  2. DETENSIEL [Suspect]
     Route: 048

REACTIONS (6)
  - DERMATITIS [None]
  - LICHENIFICATION [None]
  - NEURODERMATITIS [None]
  - PARAKERATOSIS [None]
  - PRURITUS [None]
  - RASH PAPULAR [None]
